FAERS Safety Report 7798769-1 (Version None)
Quarter: 2011Q4

REPORT INFORMATION
  Report Type: 
  Country: None (occurrence: None)
  Receive Date: 20111006
  Receipt Date: 20110927
  Transmission Date: 20120403
  Serious: Yes (Hospitalization)
  Sender: FDA-Public Use
  Company Number: PHHY2011US86205

PATIENT
  Age: 88 Year
  Sex: Female

DRUGS (1)
  1. ENOXAPARIN [Suspect]

REACTIONS (3)
  - SHOCK [None]
  - RENAL FAILURE ACUTE [None]
  - ABDOMINAL WALL HAEMATOMA [None]
